FAERS Safety Report 12297280 (Version 2)
Quarter: 2016Q2

REPORT INFORMATION
  Report Type: Report from Study
  Country: BR (occurrence: BR)
  Receive Date: 20160422
  Receipt Date: 20160504
  Transmission Date: 20160815
  Serious: Yes (Other)
  Sender: FDA-Public Use
  Company Number: BR-ABBVIE-16K-020-1605902-00

PATIENT
  Age: 48 Year
  Sex: Female
  Weight: 62 kg

DRUGS (5)
  1. PREDNISONE. [Concomitant]
     Active Substance: PREDNISONE
     Indication: PAIN
     Route: 048
     Dates: start: 201506
  2. PREDNISONE. [Concomitant]
     Active Substance: PREDNISONE
     Route: 048
  3. HUMIRA [Suspect]
     Active Substance: ADALIMUMAB
     Indication: RHEUMATOID ARTHRITIS
     Route: 058
     Dates: start: 20150629
  4. NAPROXEN. [Concomitant]
     Active Substance: NAPROXEN
     Indication: PAIN
     Dosage: 1 OR 2 TABLETS DAILY
     Route: 048
     Dates: start: 201506
  5. NAPROXEN. [Concomitant]
     Active Substance: NAPROXEN
     Indication: MUSCLE RIGIDITY
     Dosage: 1 OR 2 TABLETS DAILY
     Route: 048

REACTIONS (15)
  - Malaise [Recovering/Resolving]
  - Local swelling [Recovered/Resolved]
  - Procedural pain [Recovered/Resolved]
  - Pain [Recovering/Resolving]
  - Pharyngeal oedema [Not Recovered/Not Resolved]
  - Hypertension [Unknown]
  - Head discomfort [Not Recovered/Not Resolved]
  - Muscle rigidity [Unknown]
  - Emotional distress [Unknown]
  - Hypoacusis [Not Recovered/Not Resolved]
  - Headache [Not Recovered/Not Resolved]
  - Visual acuity reduced [Not Recovered/Not Resolved]
  - Dysphonia [Not Recovered/Not Resolved]
  - Mass [Not Recovered/Not Resolved]
  - Arthralgia [Unknown]

NARRATIVE: CASE EVENT DATE: 2015
